FAERS Safety Report 26166794 (Version 1)
Quarter: 2025Q4

REPORT INFORMATION
  Report Type: Spontaneous
  Country: EU (occurrence: EU)
  Receive Date: 20251217
  Receipt Date: 20251217
  Transmission Date: 20260117
  Serious: Yes (Hospitalization, Other)
  Sender: AUROBINDO
  Company Number: EU-LRB-01099651

PATIENT
  Age: 60 Year
  Sex: Female
  Weight: 63 kg

DRUGS (26)
  1. ROSUVASTATIN [Suspect]
     Active Substance: ROSUVASTATIN
     Indication: Prophylaxis
     Dosage: 40 MILLIGRAM, ONCE A DAY
     Route: 061
     Dates: start: 20210120, end: 20250728
  2. OZEMPIC [Suspect]
     Active Substance: SEMAGLUTIDE
     Indication: Type 2 diabetes mellitus
     Dosage: STARTED ON SEMAGLUTIDE 0.25 ONCE A WEEK
     Route: 065
     Dates: start: 20250515, end: 20250728
  3. OZEMPIC [Suspect]
     Active Substance: SEMAGLUTIDE
     Dosage: AFTER 1 MONTH, DOSE TO 0.5MG ONCE A WEEK
     Route: 065
  4. DAPAGLIFLOZINE TABLET 10MG / Brand name not specified [Concomitant]
     Indication: Product used for unknown indication
     Dosage: 10 MILLIGRAM
     Route: 061
  5. METFORMIN HYDROCHLORIDE [Concomitant]
     Active Substance: METFORMIN HYDROCHLORIDE
     Indication: Product used for unknown indication
     Dosage: 1000 MILLIGRAM
     Route: 061
  6. ASPIRIN [Concomitant]
     Active Substance: ASPIRIN
     Indication: Product used for unknown indication
     Dosage: UNK
     Route: 061
  7. AMLODIPINE [Concomitant]
     Active Substance: AMLODIPINE BESYLATE
     Indication: Product used for unknown indication
     Dosage: UNK
     Route: 061
  8. BETAMETHASON ZALF 1MG/G / BETNELAN ZALF 1MG/G [Concomitant]
     Indication: Product used for unknown indication
     Dosage: UNK
  9. CETOMACROGOLCREME MET VASELINE 10% / Brand name not specified [Concomitant]
     Indication: Product used for unknown indication
     Dosage: UNK
  10. COLECALCIFEROL DRANK  50.000IE/ML / Brand name not specified [Concomitant]
     Indication: Product used for unknown indication
     Dosage: UNK
     Route: 061
  11. COLECALCIFEROL DRANK  25.000IE/ML / D-CURA DRANK  25000IE AMPUL 1ML [Concomitant]
     Indication: Product used for unknown indication
     Dosage: UNK
     Route: 061
  12. DESLORATADINE TABLET 5MG / Brand name not specified [Concomitant]
     Indication: Product used for unknown indication
     Dosage: UNK
     Route: 061
  13. ESTRIOL OVULE 0,5MG / SYNAPAUSE E3 OVULE 0,5MG [Concomitant]
     Indication: Product used for unknown indication
     Dosage: UNK
  14. EZETIMIBE [Concomitant]
     Active Substance: EZETIMIBE
     Indication: Product used for unknown indication
     Dosage: UNK
     Route: 061
  15. FERROUS FUMARATE [Concomitant]
     Active Substance: FERROUS FUMARATE
     Indication: Product used for unknown indication
     Dosage: UNK
     Route: 061
  16. AZELASTINE/FLUTICASON NEUSSPRAY 137/50UG/DO / FLURIZAL NEUSSPRAY 137/5 [Concomitant]
     Indication: Product used for unknown indication
     Dosage: UNK
  17. BECLOMETASON/FORMOTEROL INHALATIEPOEDER 100/6UG/DO / FOSTER NEXTHALER [Concomitant]
     Indication: Product used for unknown indication
     Dosage: UNK
  18. ISOSORBIDEMONONITRAAT TABLET MGA  30MG / PROMOCARD DURETTE TABLET MGA [Concomitant]
     Indication: Product used for unknown indication
     Dosage: UNK
     Route: 061
  19. LOSARTAN TABLET FO 100MG / COZAAR TABLET FILMOMHULD 100MG [Concomitant]
     Indication: Product used for unknown indication
     Dosage: UNK
     Route: 061
  20. MELATONINE TABLET 1MG / Brand name not specified [Concomitant]
     Indication: Product used for unknown indication
     Dosage: UNK
     Route: 061
  21. METOCLOPRAMIDE [Concomitant]
     Active Substance: METOCLOPRAMIDE
     Indication: Product used for unknown indication
     Dosage: UNK
     Route: 061
  22. METOPROLOL TABLET  100MG / Brand name not specified [Concomitant]
     Indication: Product used for unknown indication
     Dosage: UNK
     Route: 061
  23. NITROGLYCERINE SPRAY SUBLING. 0,4MG/DO / NITROLINGUAL OROMUCOSALE SPRA [Concomitant]
     Indication: Product used for unknown indication
     Dosage: UNK
  24. PANTOPRAZOL TABLET MSR 40MG / PANTOZOL TABLET MSR 40MG [Concomitant]
     Indication: Product used for unknown indication
     Dosage: UNK
     Route: 061
  25. ROSUVASTATIN [Concomitant]
     Active Substance: ROSUVASTATIN
     Indication: Product used for unknown indication
     Dosage: UNK
     Route: 061
  26. TRIAMCINOLONACETONIDE MONDPASTA 1MG/G / Brand name not specified [Concomitant]
     Indication: Product used for unknown indication
     Dosage: UNK

REACTIONS (4)
  - Rhabdomyolysis [Recovering/Resolving]
  - Acute kidney injury [Recovering/Resolving]
  - Vomiting [Recovered/Resolved]
  - Diarrhoea [Recovered/Resolved]
